FAERS Safety Report 13194794 (Version 1)
Quarter: 2017Q1

REPORT INFORMATION
  Report Type: Spontaneous
  Country: US (occurrence: US)
  Receive Date: 20170207
  Receipt Date: 20170207
  Transmission Date: 20170428
  Serious: Yes (Other)
  Sender: FDA-Public Use
  Company Number: US-TEVA-737656USA

PATIENT
  Age: 88 Year
  Sex: Female

DRUGS (1)
  1. FENTANYL. [Suspect]
     Active Substance: FENTANYL
     Indication: LUMBAR VERTEBRAL FRACTURE
     Dosage: 25 MCG/HR
     Route: 062
     Dates: start: 20170202

REACTIONS (2)
  - Pain [Unknown]
  - Abasia [Unknown]

NARRATIVE: CASE EVENT DATE: 20170202
